FAERS Safety Report 7495660-5 (Version None)
Quarter: 2011Q2

REPORT INFORMATION
  Report Type: 
  Country: None (occurrence: None)
  Receive Date: 20110523
  Receipt Date: 20110517
  Transmission Date: 20111010
  Serious: No
  Sender: FDA-Public Use
  Company Number: US-PFIZER INC-2011107072

PATIENT
  Sex: Female

DRUGS (1)
  1. ANTIVERT [Suspect]
     Dosage: 25 MG, 4X/DAY

REACTIONS (1)
  - DIZZINESS [None]
